FAERS Safety Report 16120771 (Version 2)
Quarter: 2019Q2

REPORT INFORMATION
  Report Type: Report from Study
  Country: None (occurrence: US)
  Receive Date: 20190327
  Receipt Date: 20190502
  Transmission Date: 20190711
  Serious: No
  Sender: FDA-Public Use
  Company Number: US-ABBVIE-19K-163-2718314-00

PATIENT
  Sex: Male
  Weight: 59.02 kg

DRUGS (9)
  1. HUMIRA [Suspect]
     Active Substance: ADALIMUMAB
     Indication: CROHN^S DISEASE
     Route: 058
     Dates: start: 2018
  2. POTASSIUM [Concomitant]
     Active Substance: POTASSIUM
     Indication: MINERAL SUPPLEMENTATION
  3. HYDROCODONE [Concomitant]
     Active Substance: HYDROCODONE
     Indication: PAIN
  4. ACYCLOVIR. [Concomitant]
     Active Substance: ACYCLOVIR
     Indication: ORAL HERPES
  5. PREDNISONE. [Concomitant]
     Active Substance: PREDNISONE
     Indication: CROHN^S DISEASE
  6. AMBIEN [Concomitant]
     Active Substance: ZOLPIDEM TARTRATE
     Indication: SLEEP DISORDER THERAPY
  7. IRON [Concomitant]
     Active Substance: IRON
     Indication: MINERAL SUPPLEMENTATION
  8. MOBIC [Concomitant]
     Active Substance: MELOXICAM
     Indication: ARTHRITIS
  9. DELZICOL [Concomitant]
     Active Substance: MESALAMINE
     Indication: CROHN^S DISEASE

REACTIONS (1)
  - Upper respiratory tract infection [Recovered/Resolved]

NARRATIVE: CASE EVENT DATE: 201902
